FAERS Safety Report 4298711-4 (Version None)
Quarter: 2004Q1

REPORT INFORMATION
  Report Type: 
  Country: None (occurrence: None)
  Receive Date: 20040126
  Receipt Date: 20031028
  Transmission Date: 20041129
  Serious: No
  Sender: FDA-Public Use
  Company Number: USA031050924

PATIENT
  Age: 24 Year
  Sex: Male

DRUGS (4)
  1. STRATTERA [Suspect]
     Indication: ATTENTION DEFICIT/HYPERACTIVITY DISORDER
     Dosage: 80 MG
     Dates: start: 20030101
  2. LITHIUM [Concomitant]
  3. LEXAPRO [Concomitant]
  4. XANAX [Concomitant]

REACTIONS (1)
  - DRUG SCREEN POSITIVE [None]
